FAERS Safety Report 6261036-1 (Version None)
Quarter: 2009Q3

REPORT INFORMATION
  Report Type: 
  Country: None (occurrence: None)
  Receive Date: 20090709
  Receipt Date: 20090630
  Transmission Date: 20100115
  Serious: Yes (Hospitalization)
  Sender: FDA-Public Use
  Company Number: US-BIOGENIDEC-2009BI017907

PATIENT
  Age: 29 Year
  Sex: Female

DRUGS (1)
  1. TYSABRI [Suspect]
     Indication: MULTIPLE SCLEROSIS
     Route: 042
     Dates: start: 20071130

REACTIONS (6)
  - ANXIETY [None]
  - COGNITIVE DISORDER [None]
  - GAIT DISTURBANCE [None]
  - HEADACHE [None]
  - MIGRAINE [None]
  - VISUAL IMPAIRMENT [None]
